FAERS Safety Report 16046620 (Version 4)
Quarter: 2025Q3

REPORT INFORMATION
  Report Type: Report from Study
  Country: EU (occurrence: EU)
  Receive Date: 20190307
  Receipt Date: 20250722
  Transmission Date: 20251021
  Serious: Yes (Other)
  Sender: AUROBINDO
  Company Number: EU-AUROBINDO-AUR-APL-2019-011660

PATIENT
  Age: 69 Year
  Sex: Male

DRUGS (9)
  1. EZETIMIBE [Interacting]
     Active Substance: EZETIMIBE
     Indication: Lipid metabolism disorder
     Dosage: 10 MILLIGRAM, DAILY
     Route: 065
  2. EZETIMIBE [Interacting]
     Active Substance: EZETIMIBE
     Indication: Dyslipidaemia
  3. ATORVASTATIN [Suspect]
     Active Substance: ATORVASTATIN
     Indication: Lipid metabolism disorder
     Dosage: 80 MILLIGRAM, ONCE A DAY
     Route: 065
  4. ATORVASTATIN [Suspect]
     Active Substance: ATORVASTATIN
     Indication: Dyslipidaemia
     Dosage: 40 MILLIGRAM, ONCE A DAY
     Route: 065
  5. METOPROLOL [Concomitant]
     Active Substance: METOPROLOL
     Indication: Product used for unknown indication
     Dosage: 47.5 MILLIGRAM, ONCE A DAY
     Route: 065
  6. TELMISARTAN [Concomitant]
     Active Substance: TELMISARTAN
     Indication: Product used for unknown indication
     Route: 065
  7. TORSEMIDE [Concomitant]
     Active Substance: TORSEMIDE
     Indication: Product used for unknown indication
     Dosage: 10 MILLIGRAM, DAILY
     Route: 065
  8. ASPIRIN [Concomitant]
     Active Substance: ASPIRIN
     Indication: Product used for unknown indication
     Dosage: 75 MILLIGRAM, ONCE A DAY
     Route: 065
  9. ROSUVASTATIN [Concomitant]
     Active Substance: ROSUVASTATIN
     Indication: Product used for unknown indication
     Route: 065

REACTIONS (9)
  - Drug ineffective [Unknown]
  - Muscle disorder [Unknown]
  - Myalgia [Unknown]
  - Fatigue [Unknown]
  - Impaired work ability [Unknown]
  - Drug interaction [Unknown]
  - Blood creatine phosphokinase increased [Unknown]
  - Decreased activity [Unknown]
  - Feeling abnormal [Unknown]
